FAERS Safety Report 12754077 (Version 1)
Quarter: 2016Q3

REPORT INFORMATION
  Report Type: Report from Study
  Country: US (occurrence: US)
  Receive Date: 20160916
  Receipt Date: 20160916
  Transmission Date: 20161109
  Serious: Yes (Hospitalization, Other)
  Sender: FDA-Public Use
  Company Number: US-ROCHE-703724

PATIENT
  Age: 52 Year
  Sex: Male
  Weight: 89.6 kg

DRUGS (14)
  1. BEVACIZUMAB [Suspect]
     Active Substance: BEVACIZUMAB
     Indication: CARCINOID TUMOUR
     Dosage: 10MG/KG OVER 30-90 MINUTES ON DAYS 1 AND 15,LAST DOSE-26 MAR 2010-CYCLE 2, DAY 15, DOSE HELD
     Route: 042
  2. BEVACIZUMAB [Suspect]
     Active Substance: BEVACIZUMAB
     Route: 042
     Dates: start: 20100312, end: 20100409
  3. TEMSIROLIMUS [Suspect]
     Active Substance: TEMSIROLIMUS
     Route: 042
  4. TEMSIROLIMUS [Suspect]
     Active Substance: TEMSIROLIMUS
     Route: 042
  5. TEMSIROLIMUS [Suspect]
     Active Substance: TEMSIROLIMUS
     Route: 042
  6. TEMSIROLIMUS [Suspect]
     Active Substance: TEMSIROLIMUS
     Indication: CARCINOID TUMOUR
     Dosage: CYCLE: 28 DAYS.  FREQUENCY: ON DAYS 1, 8, 15 AND 22. LAST DOSE:16APR2010 CYCLE 3, DAY 8,DOSE HELD
     Route: 042
  7. TEMSIROLIMUS [Suspect]
     Active Substance: TEMSIROLIMUS
     Route: 042
  8. TEMSIROLIMUS [Suspect]
     Active Substance: TEMSIROLIMUS
     Route: 042
  9. TEMSIROLIMUS [Suspect]
     Active Substance: TEMSIROLIMUS
     Route: 042
  10. TEMSIROLIMUS [Suspect]
     Active Substance: TEMSIROLIMUS
     Route: 042
  11. TEMSIROLIMUS [Suspect]
     Active Substance: TEMSIROLIMUS
     Route: 042
  12. TEMSIROLIMUS [Suspect]
     Active Substance: TEMSIROLIMUS
     Route: 042
  13. TEMSIROLIMUS [Suspect]
     Active Substance: TEMSIROLIMUS
     Route: 042
  14. TEMSIROLIMUS [Suspect]
     Active Substance: TEMSIROLIMUS
     Dosage: RESTARTED
     Route: 042

REACTIONS (9)
  - Hypertension [Unknown]
  - Rectal haemorrhage [Unknown]
  - Hyperkalaemia [Unknown]
  - Proctalgia [Unknown]
  - Lower gastrointestinal haemorrhage [Unknown]
  - Anal ulcer [Recovered/Resolved with Sequelae]
  - Hypokalaemia [Unknown]
  - Pulmonary haemorrhage [Unknown]
  - Hyperglycaemia [Unknown]

NARRATIVE: CASE EVENT DATE: 20100423
